FAERS Safety Report 25888011 (Version 1)
Quarter: 2025Q4

REPORT INFORMATION
  Report Type: Spontaneous
  Country: EU (occurrence: EU)
  Receive Date: 20251007
  Receipt Date: 20251007
  Transmission Date: 20260117
  Serious: Yes (Other)
  Sender: AUROBINDO
  Company Number: EU-TEVA-VS-3362159

PATIENT
  Age: 34 Year
  Sex: Female

DRUGS (4)
  1. METOPROLOL [Suspect]
     Active Substance: METOPROLOL
     Indication: Migraine
     Dosage: DOSE: UP TO 50 MG DURING PREGNANCY
     Route: 065
  2. AJOVY [Suspect]
     Active Substance: FREMANEZUMAB-VFRM
     Indication: Migraine
     Dosage: 225 MILLIGRAM
     Route: 058
     Dates: start: 20250819
  3. AJOVY [Suspect]
     Active Substance: FREMANEZUMAB-VFRM
     Dosage: 225 MILLIGRAM
     Route: 058
     Dates: end: 2024
  4. AMITRIPTYLINE [Concomitant]
     Active Substance: AMITRIPTYLINE
     Indication: Migraine
     Dosage: DISCONTINUED IN EARLY PREGNANCY
     Route: 065
     Dates: end: 2024

REACTIONS (5)
  - Gestational diabetes [Unknown]
  - Migraine [Unknown]
  - Maternal exposure timing unspecified [Unknown]
  - Normal newborn [Unknown]
  - Maternal exposure during breast feeding [Unknown]

NARRATIVE: CASE EVENT DATE: 20241009
